FAERS Safety Report 7033284-4 (Version None)
Quarter: 2010Q4

REPORT INFORMATION
  Report Type: 
  Country: None (occurrence: None)
  Receive Date: 20101007
  Receipt Date: 20101002
  Transmission Date: 20110411
  Serious: Yes (Disabling)
  Sender: FDA-Public Use
  Company Number: A0885135A

PATIENT

DRUGS (2)
  1. CELSENTRI [Suspect]
     Indication: HIV INFECTION
  2. ANTIRETROVIRAL MEDICATIONS [Concomitant]
     Indication: HIV INFECTION

REACTIONS (1)
  - ASTHENIA [None]
